FAERS Safety Report 14107780 (Version 1)
Quarter: 2017Q4

REPORT INFORMATION
  Report Type: Spontaneous
  Country: JP (occurrence: JP)
  Receive Date: 20171019
  Receipt Date: 20171019
  Transmission Date: 20180321
  Serious: Yes (Death, Other)
  Sender: FDA-Public Use
  Company Number: JP-BRISTOL-MYERS SQUIBB COMPANY-BMS-2017-093958

PATIENT
  Age: 61 Year
  Sex: Female

DRUGS (1)
  1. TRIAMCINOLONE ACETONIDE. [Suspect]
     Active Substance: TRIAMCINOLONE ACETONIDE
     Indication: MALIGNANT ASCITES
     Dosage: 400 MG, UNK
     Route: 033

REACTIONS (3)
  - Product use issue [Unknown]
  - Intestinal perforation [Fatal]
  - Product use in unapproved indication [Unknown]
